FAERS Safety Report 21939032 (Version 1)
Quarter: 2023Q1

REPORT INFORMATION
  Report Type: Report from Study
  Country: US (occurrence: US)
  Receive Date: 20230201
  Receipt Date: 20230201
  Transmission Date: 20230418
  Serious: Yes (Hospitalization)
  Sender: FDA-Public Use
  Company Number: US-EXELIXIS-CABO-22053822

PATIENT
  Sex: Female

DRUGS (1)
  1. CABOMETYX [Suspect]
     Active Substance: CABOZANTINIB S-MALATE
     Indication: Malignant neoplasm of renal pelvis
     Dosage: 60 MG, QD
     Route: 048
     Dates: start: 20220616, end: 20220728

REACTIONS (5)
  - Urinary bladder haemorrhage [Unknown]
  - Skin irritation [Unknown]
  - Erythema [Unknown]
  - Thrombosis [Unknown]
  - Off label use [Unknown]
